FAERS Safety Report 19157051 (Version 6)
Quarter: 2021Q3

REPORT INFORMATION
  Report Type: Report from Study
  Country: US (occurrence: US)
  Receive Date: 20210420
  Receipt Date: 20210706
  Transmission Date: 20211014
  Serious: Yes (Other)
  Sender: FDA-Public Use
  Company Number: NVSC2021US088199

PATIENT
  Age: 71 Year
  Sex: Female

DRUGS (2)
  1. ENTRESTO [Suspect]
     Active Substance: SACUBITRIL\VALSARTAN
     Dosage: 50 MG (24/26), BID (DOSE DECREASED)
     Route: 048
  2. ENTRESTO [Suspect]
     Active Substance: SACUBITRIL\VALSARTAN
     Indication: CHRONIC LEFT VENTRICULAR FAILURE
     Dosage: 100 MG, BID (49/51 MG)
     Route: 065
     Dates: start: 20200211

REACTIONS (28)
  - Type 2 diabetes mellitus [Unknown]
  - Dyspnoea exertional [Unknown]
  - Insomnia [Unknown]
  - Aortic valve incompetence [Unknown]
  - Mitral valve incompetence [Unknown]
  - Heart rate irregular [Unknown]
  - Fatigue [Unknown]
  - Cardiac failure congestive [Recovered/Resolved]
  - Wound [Unknown]
  - Pericardial effusion [Unknown]
  - Gait disturbance [Unknown]
  - Left ventricular dilatation [Unknown]
  - Contusion [Unknown]
  - Cardiac dysfunction [Unknown]
  - Tricuspid valve incompetence [Unknown]
  - Haemorrhage [Unknown]
  - Gout [Unknown]
  - Left atrial dilatation [Unknown]
  - High density lipoprotein decreased [Unknown]
  - Ejection fraction decreased [Unknown]
  - Essential hypertension [Unknown]
  - Decubitus ulcer [Unknown]
  - Atrial fibrillation [Unknown]
  - Thyroid disorder [Unknown]
  - Dizziness [Unknown]
  - Blood triglycerides increased [Unknown]
  - Palpitations [Unknown]
  - Hypotension [Unknown]

NARRATIVE: CASE EVENT DATE: 202010
